FAERS Safety Report 5909825-4 (Version None)
Quarter: 2008Q4

REPORT INFORMATION
  Report Type: 
  Country: None (occurrence: None)
  Receive Date: 20081004
  Receipt Date: 20081004
  Transmission Date: 20090506
  Serious: Yes (Other)
  Sender: FDA-Public Use
  Company Number: None

PATIENT
  Age: 54 Year
  Sex: Female
  Weight: 52.1637 kg

DRUGS (2)
  1. AMBIEN CR [Suspect]
     Indication: INSOMNIA
     Dosage: ORAL @ BEDTIME X 1 YR AGO
     Route: 048
  2. TYLENOL PM BY TYLENOL [Suspect]
     Indication: INSOMNIA
     Dosage: ORAL @ BEDTIME X 1 YR AGO
     Route: 048

REACTIONS (1)
  - TREATMENT FAILURE [None]
